FAERS Safety Report 25068839 (Version 2)
Quarter: 2025Q1

REPORT INFORMATION
  Report Type: Spontaneous
  Country: FR (occurrence: FR)
  Receive Date: 20250312
  Receipt Date: 20250318
  Transmission Date: 20250408
  Serious: Yes (Death, Other)
  Sender: SANOFI AVENTIS
  Company Number: None

PATIENT
  Age: 70 Year
  Sex: Male
  Weight: 87 kg

DRUGS (9)
  1. OXALIPLATIN [Suspect]
     Active Substance: OXALIPLATIN
     Indication: Rectosigmoid cancer metastatic
     Route: 042
     Dates: start: 20250212, end: 20250212
  2. OXALIPLATIN [Suspect]
     Active Substance: OXALIPLATIN
     Dates: start: 20250129
  3. ONDANSETRON [Suspect]
     Active Substance: ONDANSETRON
     Indication: Chemotherapy side effect prophylaxis
     Route: 048
     Dates: start: 20250212, end: 20250212
  4. FLUOROURACIL [Suspect]
     Active Substance: FLUOROURACIL
     Indication: Rectosigmoid cancer metastatic
     Dates: start: 20250129
  5. FLUOROURACIL [Suspect]
     Active Substance: FLUOROURACIL
     Route: 042
     Dates: start: 20250212
  6. LEUCOVORIN CALCIUM [Suspect]
     Active Substance: LEUCOVORIN CALCIUM
     Indication: Chemotherapy side effect prophylaxis
     Route: 042
     Dates: start: 20250212, end: 20250212
  7. LEUCOVORIN CALCIUM [Suspect]
     Active Substance: LEUCOVORIN CALCIUM
     Dates: start: 20250129
  8. ALDACTONE [Suspect]
     Active Substance: SPIRONOLACTONE
     Indication: Dyspnoea
     Dosage: UNK UNK, QD
     Route: 048
     Dates: start: 20250206
  9. PREDNISOLONE SODIUM METAZOATE [Suspect]
     Active Substance: PREDNISOLONE SODIUM METAZOATE
     Indication: Chemotherapy side effect prophylaxis
     Route: 048
     Dates: start: 20250212, end: 20250212

REACTIONS (2)
  - Acute pulmonary oedema [Fatal]
  - Cardio-respiratory arrest [Fatal]

NARRATIVE: CASE EVENT DATE: 20250213
